FAERS Safety Report 4323943-6 (Version None)
Quarter: 2004Q1

REPORT INFORMATION
  Report Type: 
  Country: None (occurrence: None)
  Receive Date: 20040323
  Receipt Date: 20040311
  Transmission Date: 20041129
  Serious: Yes (Death, Other)
  Sender: FDA-Public Use
  Company Number: 200415667BWH

PATIENT
  Age: 76 Year
  Sex: Male

DRUGS (4)
  1. TRASYLOL [Suspect]
     Indication: CORONARY ARTERY SURGERY
     Dosage: INTRAVENOUS
     Route: 042
     Dates: start: 20040228
  2. ALBUMINAR 5 % (NOS) (ALBUMIN HUMAN) [Suspect]
     Indication: CORONARY ARTERY SURGERY
     Dosage: 750 ML, TOTAL DAILY, INTRAVENOUS
     Route: 042
     Dates: start: 20040228
  3. LEVOPHED [Concomitant]
  4. DOBUTREX [Concomitant]

REACTIONS (9)
  - BLOOD PRESSURE DECREASED [None]
  - CARDIAC ARREST [None]
  - CARDIAC FAILURE [None]
  - CARDIAC OUTPUT DECREASED [None]
  - HYPOVOLAEMIA [None]
  - PHARMACEUTICAL PRODUCT COMPLAINT [None]
  - POST PROCEDURAL COMPLICATION [None]
  - THROMBOSIS [None]
  - VASCULAR BYPASS GRAFT [None]
